FAERS Safety Report 6635253-2 (Version None)
Quarter: 2010Q1

REPORT INFORMATION
  Report Type: 
  Country: None (occurrence: None)
  Receive Date: 20100315
  Receipt Date: 20100303
  Transmission Date: 20100710
  Serious: Yes (Hospitalization)
  Sender: FDA-Public Use
  Company Number: JP-PFIZER INC-2010030519

PATIENT
  Sex: Female

DRUGS (1)
  1. ZOLOFT [Suspect]
     Indication: BIPOLAR I DISORDER
     Dosage: 25 MG, 2X/DAY
     Route: 048
     Dates: start: 20090801

REACTIONS (3)
  - BIPOLAR I DISORDER [None]
  - DIARRHOEA [None]
  - DRUG INEFFECTIVE [None]
